FAERS Safety Report 7486297-2 (Version None)
Quarter: 2011Q2

REPORT INFORMATION
  Report Type: 
  Country: None (occurrence: None)
  Receive Date: 20110517
  Receipt Date: 20110509
  Transmission Date: 20111010
  Serious: Yes (Death)
  Sender: FDA-Public Use
  Company Number: JP-KINGPHARMUSA00001-K201100559

PATIENT
  Sex: Female
  Weight: 49 kg

DRUGS (4)
  1. SYNERCID [Suspect]
     Indication: SEPSIS
     Dosage: 7 MG/KG, TID
     Route: 042
     Dates: start: 20091225, end: 20100105
  2. VANCOMYCIN [Concomitant]
     Indication: SEPSIS
     Dosage: 1 G/DAY
     Route: 042
     Dates: start: 20091218, end: 20091225
  3. CEFTAZIDIME [Concomitant]
     Indication: SEPSIS
     Dosage: 2 G/DAY
     Route: 042
     Dates: start: 20091218, end: 20091225
  4. MICAFUNGIN SODIUM [Concomitant]
     Indication: SEPSIS
     Dosage: 100 MG/DAY
     Route: 042
     Dates: start: 20100103, end: 20100105

REACTIONS (2)
  - DEVICE RELATED INFECTION [None]
  - CANDIDA SEPSIS [None]
